FAERS Safety Report 16943064 (Version 1)
Quarter: 2019Q4

REPORT INFORMATION
  Report Type: Report from Study
  Country: US (occurrence: US)
  Receive Date: 20191021
  Receipt Date: 20191021
  Transmission Date: 20200122
  Serious: Yes (Hospitalization)
  Sender: FDA-Public Use
  Company Number: NVSC2019US006635

PATIENT
  Sex: Male
  Weight: 146.1 kg

DRUGS (3)
  1. GSK2118436 [Suspect]
     Active Substance: DABRAFENIB
     Indication: MALIGNANT MELANOMA
     Dosage: 150 MG, BID
     Route: 048
     Dates: end: 20190911
  2. TRAMETINIB [Suspect]
     Active Substance: TRAMETINIB
     Indication: MALIGNANT MELANOMA
     Dosage: 2 MG, QD
     Route: 048
     Dates: end: 20190911
  3. NAVITOCLAX [Suspect]
     Active Substance: NAVITOCLAX
     Indication: MALIGNANT MELANOMA
     Dosage: 150 MG, QD DAY 1 TO 7
     Route: 048
     Dates: end: 20190907

REACTIONS (1)
  - Sepsis [Recovered/Resolved]

NARRATIVE: CASE EVENT DATE: 20190912
